FAERS Safety Report 10746473 (Version 4)
Quarter: 2015Q1

REPORT INFORMATION
  Report Type: Report from Study
  Country: ES (occurrence: ES)
  Receive Date: 20150128
  Receipt Date: 20150317
  Transmission Date: 20150721
  Serious: Yes (Hospitalization, Other)
  Sender: FDA-Public Use
  Company Number: ES-ABBVIE-15P-144-1337963-00

PATIENT
  Age: 76 Year
  Sex: Female

DRUGS (1)
  1. DUODOPA [Suspect]
     Active Substance: CARBIDOPA\LEVODOPA
     Indication: PARKINSON^S DISEASE
     Dosage: MD 12.5 ML, CD 3.6 ML/H, ED 3 ML
     Route: 050
     Dates: start: 20110614, end: 20150227

REACTIONS (5)
  - Device issue [Unknown]
  - Fall [Unknown]
  - Hip fracture [Unknown]
  - Joint dislocation [Unknown]
  - Device occlusion [Unknown]

NARRATIVE: CASE EVENT DATE: 20150124
